FAERS Safety Report 17460474 (Version 1)
Quarter: 2020Q1

REPORT INFORMATION
  Report Type: Report from Study
  Country: US (occurrence: US)
  Receive Date: 20200225
  Receipt Date: 20200225
  Transmission Date: 20200409
  Serious: Yes (Other)
  Sender: FDA-Public Use
  Company Number: US-ROCHE-2556600

PATIENT
  Age: 51 Year
  Sex: Female
  Weight: 69.01 kg

DRUGS (2)
  1. LUCENTIS [Suspect]
     Active Substance: RANIBIZUMAB
     Indication: RETINAL VEIN OCCLUSION
     Dosage: ONGOING:YES
     Route: 050
     Dates: start: 201809
  2. LUCENTIS [Suspect]
     Active Substance: RANIBIZUMAB
     Dosage: ONGOING:YES
     Route: 050
     Dates: start: 20190123

REACTIONS (1)
  - Staphylococcal infection [Recovered/Resolved]

NARRATIVE: CASE EVENT DATE: 20191216
